FAERS Safety Report 5083704-X (Version None)
Quarter: 2006Q3

REPORT INFORMATION
  Report Type: 
  Country: None (occurrence: None)
  Receive Date: 20060818
  Receipt Date: 20060616
  Transmission Date: 20061208
  Serious: Yes (Death, Hospitalization)
  Sender: FDA-Public Use
  Company Number: JP-ROCHE-452180

PATIENT
  Age: 73 Year
  Sex: Male

DRUGS (2)
  1. PANALDINE [Suspect]
     Dosage: SECONDARY INDICATION: ANGINA PECTORIS.
     Route: 048
     Dates: start: 20050115
  2. ASPIRIN [Concomitant]
     Dates: start: 20050115

REACTIONS (8)
  - DEPRESSIVE SYMPTOM [None]
  - HYPERPROTEINAEMIA [None]
  - HYPOCOMPLEMENTAEMIA [None]
  - LUPUS-LIKE SYNDROME [None]
  - PLEURAL EFFUSION [None]
  - PLEURISY [None]
  - PSYCHIATRIC SYMPTOM [None]
  - PYREXIA [None]
